FAERS Safety Report 13102998 (Version 2)
Quarter: 2018Q1

REPORT INFORMATION
  Report Type: Spontaneous
  Country: US (occurrence: US)
  Receive Date: 20170110
  Receipt Date: 20180124
  Transmission Date: 20180508
  Serious: Yes (Death)
  Sender: FDA-Public Use
  Company Number: US-INSYS THERAPEUTICS, INC-INS201701-000001

PATIENT
  Age: 46 Year
  Sex: Female

DRUGS (8)
  1. SUBSYS [Suspect]
     Active Substance: FENTANYL
     Indication: BREAKTHROUGH PAIN
     Route: 060
     Dates: start: 20161004
  2. NEUPOGEN [Concomitant]
     Active Substance: FILGRASTIM
  3. RESTORIL [Concomitant]
     Active Substance: TEMAZEPAM
  4. FENTANYL TRANSDERMAL SYSTEM [Concomitant]
     Active Substance: FENTANYL
  5. PALBOCICLIB [Concomitant]
     Active Substance: PALBOCICLIB
  6. XANAX [Concomitant]
     Active Substance: ALPRAZOLAM
  7. MAGNESIUM [Concomitant]
     Active Substance: MAGNESIUM
  8. MORPHINE [Concomitant]
     Active Substance: MORPHINE

REACTIONS (1)
  - Neoplasm progression [Fatal]

NARRATIVE: CASE EVENT DATE: 20161225
